FAERS Safety Report 20318338 (Version 2)
Quarter: 2022Q1

REPORT INFORMATION
  Report Type: Spontaneous
  Country: US (occurrence: US)
  Receive Date: 20220110
  Receipt Date: 20220121
  Transmission Date: 20220423
  Serious: Yes (Death, Hospitalization)
  Sender: FDA-Public Use
  Company Number: US-TEVA-2022-US-1997469

PATIENT
  Age: 59 Year
  Sex: Female

DRUGS (12)
  1. LEVOFLOXACIN [Suspect]
     Active Substance: LEVOFLOXACIN
     Indication: Septic shock
     Route: 065
     Dates: start: 20210616
  2. METRONIDAZOLE [Suspect]
     Active Substance: METRONIDAZOLE
     Indication: Septic shock
     Route: 065
     Dates: start: 20210616
  3. NOREPINEPHRINE [Suspect]
     Active Substance: NOREPINEPHRINE
     Indication: Vasopressive therapy
     Route: 065
     Dates: start: 20210616
  4. CEFEPIME [Suspect]
     Active Substance: CEFEPIME HYDROCHLORIDE
     Indication: Septic shock
     Route: 065
     Dates: start: 20210616
  5. DOXYCYCLINE [Suspect]
     Active Substance: DOXYCYCLINE
     Indication: Bacteraemia
     Route: 065
     Dates: start: 20210617
  6. VITAMIN C [Suspect]
     Active Substance: ASCORBIC ACID
     Indication: Septic shock
     Route: 042
     Dates: start: 20210617
  7. HYDROCORTISONE [Suspect]
     Active Substance: HYDROCORTISONE
     Indication: Septic shock
     Route: 042
     Dates: start: 20210617
  8. THIAMINE [Suspect]
     Active Substance: THIAMINE
     Indication: Septic shock
     Route: 042
     Dates: start: 20210617
  9. SODIUM BICARBONATE [Suspect]
     Active Substance: SODIUM BICARBONATE
     Indication: Septic shock
     Dosage: CONTAINS 150MEQ OF SODIUM BICARBONATE IN 1L D5W
     Route: 050
     Dates: start: 20210617
  10. GRANIX [Concomitant]
     Active Substance: TBO-FILGRASTIM
     Indication: Product used for unknown indication
     Route: 065
     Dates: start: 20210616
  11. ALBUTEROL\IPRATROPIUM [Concomitant]
     Active Substance: ALBUTEROL\IPRATROPIUM
     Indication: Dyspnoea
     Dosage: NEBULISATION ON EVERY 4 TO 6H
     Route: 065
     Dates: start: 20210616
  12. DEXTROSE [Concomitant]
     Active Substance: DEXTROSE
     Indication: Vehicle solution use
     Route: 065
     Dates: start: 20210617

REACTIONS (1)
  - Drug ineffective [Fatal]
